FAERS Safety Report 5353015-3 (Version None)
Quarter: 2007Q2

REPORT INFORMATION
  Report Type: 
  Country: None (occurrence: None)
  Receive Date: 20070611
  Receipt Date: 20070601
  Transmission Date: 20071010
  Serious: Yes (Death)
  Sender: FDA-Public Use
  Company Number: US-AMGEN-US227495

PATIENT
  Sex: Male

DRUGS (6)
  1. ENBREL [Suspect]
     Indication: RHEUMATOID ARTHRITIS
     Route: 058
     Dates: start: 20030101
  2. PREDNISONE TAB [Concomitant]
  3. METHOTREXATE [Concomitant]
     Dates: start: 20020101
  4. ACTONEL [Concomitant]
  5. OXYCONTIN [Concomitant]
  6. VITAMIN CAP [Concomitant]

REACTIONS (1)
  - DEATH [None]
